FAERS Safety Report 15196236 (Version 1)
Quarter: 2018Q3

REPORT INFORMATION
  Report Type: Spontaneous
  Country: SE (occurrence: SE)
  Receive Date: 20180725
  Receipt Date: 20180725
  Transmission Date: 20181010
  Serious: Yes (Hospitalization, Other)
  Sender: FDA-Public Use
  Company Number: PHHY2018SE053631

PATIENT
  Age: 70 Year
  Sex: Female

DRUGS (3)
  1. ENALAPRIL MALEATE. [Suspect]
     Active Substance: ENALAPRIL MALEATE
     Indication: HYPERTENSION
     Dosage: UNK
     Route: 065
  2. CELECOXIB. [Interacting]
     Active Substance: CELECOXIB
     Dosage: 400 MG, QD
     Route: 065
     Dates: start: 20180428
  3. CELECOXIB. [Interacting]
     Active Substance: CELECOXIB
     Indication: ARTHRALGIA
     Dosage: 400 MG, QD
     Route: 065
     Dates: start: 20180423

REACTIONS (2)
  - Acute kidney injury [Unknown]
  - Drug interaction [Unknown]

NARRATIVE: CASE EVENT DATE: 20180514
